FAERS Safety Report 19552375 (Version 1)
Quarter: 2021Q3

REPORT INFORMATION
  Report Type: Spontaneous
  Country: US (occurrence: US)
  Receive Date: 20210715
  Receipt Date: 20210715
  Transmission Date: 20211014
  Serious: Yes (Death)
  Sender: FDA-Public Use
  Company Number: US-SPECGX-T202101657

PATIENT
  Age: 34 Year
  Sex: Female

DRUGS (1)
  1. FENTANYL CITRATE. [Suspect]
     Active Substance: FENTANYL CITRATE
     Indication: PRODUCT USED FOR UNKNOWN INDICATION
     Dosage: UNK
     Route: 065

REACTIONS (9)
  - Myocardial ischaemia [Fatal]
  - Hepatotoxicity [Fatal]
  - Acute lung injury [Fatal]
  - Respiratory depression [Fatal]
  - Toxicity to various agents [Fatal]
  - Hypotension [Fatal]
  - Coma [Fatal]
  - Metabolic acidosis [Fatal]
  - Acute kidney injury [Fatal]
